FAERS Safety Report 5130548-6 (Version None)
Quarter: 2006Q4

REPORT INFORMATION
  Report Type: 
  Country: None (occurrence: None)
  Receive Date: 20061017
  Receipt Date: 20061017
  Transmission Date: 20070319
  Serious: Yes (Hospitalization)
  Sender: FDA-Public Use
  Company Number: None

PATIENT
  Age: 12 Year
  Sex: Female
  Weight: 42.3 kg

DRUGS (9)
  1. CAMPTOSAR [Suspect]
     Indication: LIPOSARCOMA
     Dosage: 14 MG DAILY X 5 X 2 PO
     Route: 048
     Dates: start: 20061006, end: 20061009
  2. IRESSA [Suspect]
     Indication: LIPOSARCOMA
     Dosage: 200 MG/DOSE DAILY X 12 DAYS PO
     Route: 048
     Dates: start: 20061004, end: 20061008
  3. MARINOL [Concomitant]
  4. LOPERAMIDE [Concomitant]
  5. SEPTRA [Concomitant]
  6. ATIVAN [Concomitant]
  7. KYTRIL [Concomitant]
  8. SENOKOT [Concomitant]
  9. POTASSIUM CHLORIDE [Concomitant]

REACTIONS (15)
  - BLOOD PRESSURE DIASTOLIC DECREASED [None]
  - CEREBRAL ISCHAEMIA [None]
  - DISEASE RECURRENCE [None]
  - FATIGUE [None]
  - HAEMOTHORAX [None]
  - HEART RATE INCREASED [None]
  - HEMIANOPIA [None]
  - HEMIPARESIS [None]
  - HYPERTENSION [None]
  - HYPERTENSIVE ENCEPHALOPATHY [None]
  - MEDIASTINAL MASS [None]
  - NAUSEA [None]
  - NERVOUS SYSTEM DISORDER [None]
  - VISUAL DISTURBANCE [None]
  - VOMITING [None]
